FAERS Safety Report 4308899-4 (Version None)
Quarter: 2004Q1

REPORT INFORMATION
  Report Type: 
  Country: None (occurrence: None)
  Receive Date: 20040302
  Receipt Date: 20031118
  Transmission Date: 20041129
  Serious: Yes (Hospitalization)
  Sender: FDA-Public Use
  Company Number: PHRM2003FR03082

PATIENT
  Age: 65 Year
  Sex: Female

DRUGS (10)
  1. FRACTAL [Suspect]
     Dosage: 1 DF, QD
     Route: 048
     Dates: start: 20021215
  2. ALDACTAZIDE [Suspect]
     Dosage: 25 MG/DAY
     Route: 048
     Dates: start: 20021215
  3. SECTRAL [Suspect]
     Dosage: 200 MG/DAY
     Route: 048
     Dates: start: 20021215
  4. GLUCOR [Concomitant]
     Dosage: 3 DF/DAY
     Route: 048
     Dates: start: 20021201
  5. PLAVIX [Concomitant]
     Dosage: 2 DF/DAY
     Route: 048
     Dates: start: 20021201
  6. STILNOX [Concomitant]
     Dosage: 1 DF, QD
     Route: 048
     Dates: start: 20021201
  7. NITROGLYCERIN [Concomitant]
     Dosage: UNK, UNK
     Route: 062
     Dates: start: 20021201
  8. COZAAR [Suspect]
     Dosage: 1 DF, QD
     Route: 048
     Dates: start: 20021215
  9. AMLOR [Suspect]
     Dosage: 1 DF, QD
     Route: 048
     Dates: start: 20020101
  10. MOPRAL [Suspect]
     Dosage: 1 DF, QD
     Route: 048
     Dates: start: 20021215

REACTIONS (5)
  - ACANTHOLYSIS [None]
  - IMPETIGO [None]
  - PEMPHIGUS [None]
  - PRURITUS [None]
  - RASH PUSTULAR [None]
